FAERS Safety Report 4526571-2 (Version None)
Quarter: 2004Q4

REPORT INFORMATION
  Report Type: 
  Country: None (occurrence: None)
  Receive Date: 20041214
  Receipt Date: 20041202
  Transmission Date: 20050328
  Serious: Yes (Death)
  Sender: FDA-Public Use
  Company Number: JP-JNJFOC-20041200481

PATIENT
  Age: 81 Year
  Sex: Male

DRUGS (2)
  1. LEVOFLOXACIN [Suspect]
     Route: 042
     Dates: start: 20041119, end: 20041123
  2. SOLU-MEDROL [Concomitant]
     Route: 042

REACTIONS (2)
  - MYOCARDIAL INFARCTION [None]
  - SUDDEN CARDIAC DEATH [None]
